FAERS Safety Report 8158393-8 (Version None)
Quarter: 2012Q1

REPORT INFORMATION
  Report Type: 
  Country: None (occurrence: None)
  Receive Date: 20120223
  Receipt Date: 20120210
  Transmission Date: 20120608
  Serious: No
  Sender: FDA-Public Use
  Company Number: GB-JNJFOC-20111105526

PATIENT
  Sex: Female

DRUGS (3)
  1. SIMPONI [Suspect]
     Route: 058
  2. SIMPONI [Suspect]
     Route: 058
     Dates: start: 20120124
  3. SIMPONI [Suspect]
     Indication: PRODUCT USED FOR UNKNOWN INDICATION
     Route: 058
     Dates: start: 20111024

REACTIONS (3)
  - INFLUENZA [None]
  - NAUSEA [None]
  - IMMEDIATE POST-INJECTION REACTION [None]
